FAERS Safety Report 4490284-6 (Version None)
Quarter: 2004Q4

REPORT INFORMATION
  Report Type: 
  Country: None (occurrence: None)
  Receive Date: 20041101
  Receipt Date: 20041018
  Transmission Date: 20050328
  Serious: Yes (Hospitalization)
  Sender: FDA-Public Use
  Company Number: BR-MERCK-0410BRA00386

PATIENT
  Age: 50 Year
  Sex: Male

DRUGS (3)
  1. VIOXX [Suspect]
     Indication: BONE PAIN
     Route: 048
     Dates: start: 20000601, end: 20010101
  2. ACETAMINOPHEN AND CARBINOXAMINE MALEATE AND PHENYLEPHRINE HYDROCHLORID [Concomitant]
     Indication: BONE PAIN
     Route: 048
     Dates: start: 20000801, end: 20001201
  3. TRAMADOL HYDROCHLORIDE [Concomitant]
     Indication: BONE PAIN
     Route: 065
     Dates: start: 20000801, end: 20001201

REACTIONS (1)
  - MYOCARDIAL INFARCTION [None]
